FAERS Safety Report 21406238 (Version 5)
Quarter: 2024Q3

REPORT INFORMATION
  Report Type: Spontaneous
  Country: US (occurrence: US)
  Receive Date: 20221004
  Receipt Date: 20240828
  Transmission Date: 20241017
  Serious: No
  Sender: PFIZER
  Company Number: US-PFIZER INC-PV202200074012

PATIENT
  Age: 79 Year
  Sex: Female

DRUGS (4)
  1. IBRANCE [Suspect]
     Active Substance: PALBOCICLIB
     Dosage: ONE 100 MG TABLET DAILY FOR 21 DAYS (3 WEEKS) THEN ONE WEEK OFF
     Route: 048
     Dates: start: 20220829
  2. FASLODEX [Concomitant]
     Active Substance: FULVESTRANT
     Dosage: UNK
  3. XANAX [Concomitant]
     Active Substance: ALPRAZOLAM
     Indication: Anxiety
     Dosage: 0.25 MG, AS NEEDED
     Route: 048
     Dates: start: 20220812
  4. XALATAN [Concomitant]
     Active Substance: LATANOPROST
     Dosage: 2 DROP, 1X/DAY
     Route: 047
     Dates: start: 20230302

REACTIONS (4)
  - Neoplasm progression [Unknown]
  - Illness [Unknown]
  - Confusional state [Unknown]
  - Nervousness [Unknown]
